FAERS Safety Report 9458041 (Version 2)
Quarter: 2013Q3

REPORT INFORMATION
  Report Type: Spontaneous
  Country: JP (occurrence: None)
  Receive Date: 20130812
  Receipt Date: 20130821
  Transmission Date: 20140515
  Serious: Yes (Hospitalization, Other)
  Sender: FDA-Public Use
  Company Number: AXC-2013-000367

PATIENT
  Age: 24 Year
  Sex: Female

DRUGS (2)
  1. URSODEOXYCHOLIC ACID [Suspect]
     Indication: PRODUCT USED FOR UNKNOWN INDICATION
     Route: 048
     Dates: start: 20120720, end: 20120722
  2. LPOLARAMINE(DEXCHLORPHENIRAMINE MALEATE [Concomitant]

REACTIONS (3)
  - Premature labour [None]
  - Maternal exposure during pregnancy [None]
  - Premature delivery [None]
